FAERS Safety Report 10004251 (Version 1)
Quarter: 2014Q1

REPORT INFORMATION
  Report Type: Spontaneous
  Country: CA (occurrence: US)
  Receive Date: 20140312
  Receipt Date: 20140312
  Transmission Date: 20141002
  Serious: No
  Sender: FDA-Public Use
  Company Number: CA-INCYTE CORPORATION-2013IN002961

PATIENT
  Age: 65 Year
  Sex: Female

DRUGS (1)
  1. JAKAFI [Suspect]
     Indication: MYELOFIBROSIS
     Dosage: 10 MG, BID
     Route: 048
     Dates: start: 20131104

REACTIONS (3)
  - Alopecia [Unknown]
  - Rash papular [Unknown]
  - Contusion [Unknown]
